FAERS Safety Report 19847678 (Version 1)
Quarter: 2021Q3

REPORT INFORMATION
  Report Type: Report from Study
  Country: FR (occurrence: FR)
  Receive Date: 20210917
  Receipt Date: 20210917
  Transmission Date: 20211014
  Serious: Yes (Hospitalization)
  Sender: FDA-Public Use
  Company Number: FR-SERVIER-S20011550

PATIENT

DRUGS (8)
  1. TN UNSPECIFIED [Concomitant]
     Indication: ACUTE LYMPHOCYTIC LEUKAEMIA
     Dosage: 11.5 MG, ON D1 TO D21
     Route: 048
     Dates: start: 20191210, end: 20191230
  2. ADRIBLASTINE [Concomitant]
     Active Substance: DOXORUBICIN
     Indication: ACUTE LYMPHOCYTIC LEUKAEMIA
     Dosage: 16.8 MG ON D1, D8, D15, D22
     Route: 042
     Dates: start: 20191210, end: 20191231
  3. PEGASPARGASE [Suspect]
     Active Substance: PEGASPARGASE
     Indication: ACUTE LYMPHOCYTIC LEUKAEMIA
     Dosage: 13875 IU, QD ON D4
     Route: 042
     Dates: start: 20191213, end: 20191213
  4. TN UNSPECIFIED [Concomitant]
     Indication: ACUTE LYMPHOCYTIC LEUKAEMIA
     Dosage: 42 MG ON D31 TO D34, AND D38 TO D41
     Route: 042
     Dates: start: 20200120, end: 20200130
  5. TN UNSPECIFIED [Concomitant]
     Indication: ACUTE LYMPHOCYTIC LEUKAEMIA
     Dosage: 560 MG ON D29
     Route: 042
     Dates: start: 20200117
  6. TN UNSPECIFIED [Concomitant]
     Indication: ACUTE LYMPHOCYTIC LEUKAEMIA
     Dosage: 10 MG, ON D4 AND D31
     Route: 037
     Dates: start: 20191213, end: 20200120
  7. TN UNSPECIFIED [Concomitant]
     Indication: ACUTE LYMPHOCYTIC LEUKAEMIA
     Dosage: 0.84 MG ON D1, D8, D15, AND D22
     Route: 042
     Dates: start: 20191210, end: 20191231
  8. TN UNSPECIFIED [Concomitant]
     Indication: ACUTE LYMPHOCYTIC LEUKAEMIA
     Dosage: 40 MG ON D29 TO D42
     Route: 048
     Dates: start: 20200117

REACTIONS (1)
  - Clostridium colitis [Recovered/Resolved]

NARRATIVE: CASE EVENT DATE: 20200129
